FAERS Safety Report 23291679 (Version 1)
Quarter: 2023Q4

REPORT INFORMATION
  Report Type: Spontaneous
  Country: US (occurrence: US)
  Receive Date: 20231213
  Receipt Date: 20231213
  Transmission Date: 20240109
  Serious: No
  Sender: FDA-Public Use
  Company Number: US-Nobelpharma America, LLC-NPA-2023-02421

PATIENT
  Age: 23 Year
  Sex: Female

DRUGS (1)
  1. HYFTOR [Suspect]
     Active Substance: SIROLIMUS
     Indication: Tuberous sclerosis complex
     Dates: start: 20230509, end: 20231205

REACTIONS (5)
  - Headache [Unknown]
  - Dizziness [Unknown]
  - Balance disorder [Unknown]
  - Hypotension [Unknown]
  - Skin irritation [Unknown]
